FAERS Safety Report 4892870-8 (Version None)
Quarter: 2006Q1

REPORT INFORMATION
  Report Type: 
  Country: None (occurrence: None)
  Receive Date: 20060126
  Receipt Date: 20051101
  Transmission Date: 20060701
  Serious: Yes (Death, Hospitalization)
  Sender: FDA-Public Use
  Company Number: JP-MERCK-0511USA00684

PATIENT
  Age: 93 Year
  Sex: Female

DRUGS (11)
  1. STROMECTOL [Suspect]
     Indication: ACARODERMATITIS
     Route: 048
     Dates: start: 20041118, end: 20041118
  2. HALOSPOR [Suspect]
     Indication: CELLULITIS
     Route: 042
     Dates: start: 20041220, end: 20041229
  3. SPARA [Suspect]
     Indication: CELLULITIS
     Route: 048
     Dates: start: 20041230, end: 20050105
  4. ETHYL ICOSAPENTATE [Concomitant]
     Indication: ARTERIOSCLEROSIS OBLITERANS
     Route: 048
     Dates: start: 20041229
  5. KREMEZIN [Concomitant]
     Indication: SPINAL OSTEOARTHRITIS
     Route: 048
  6. FUROSEMIDE [Concomitant]
     Indication: RENAL FAILURE
     Route: 048
  7. NITRODERM [Concomitant]
     Indication: ANGINA PECTORIS
     Route: 061
  8. BUFFERIN [Concomitant]
     Indication: CEREBRAL INFARCTION
     Route: 048
  9. FLOMOX [Concomitant]
     Indication: CELLULITIS
     Route: 048
     Dates: start: 20041215, end: 20041219
  10. SERRAPEPTASE [Concomitant]
     Indication: CELLULITIS
     Route: 048
     Dates: start: 20041215, end: 20041219
  11. PROSTANDIN [Concomitant]
     Indication: ARTERIOSCLEROSIS OBLITERANS
     Route: 042
     Dates: start: 20041220, end: 20041224

REACTIONS (1)
  - RENAL FAILURE [None]
